FAERS Safety Report 9881181 (Version 2)
Quarter: 2014Q1

REPORT INFORMATION
  Report Type: Spontaneous
  Country: US (occurrence: US)
  Receive Date: 20140207
  Receipt Date: 20140211
  Transmission Date: 20141002
  Serious: Yes (Other)
  Sender: FDA-Public Use
  Company Number: US-DRREDDYS-USA/USA/14/0037821

PATIENT
  Age: 38 Year
  Sex: Male
  Weight: 97.61 kg

DRUGS (2)
  1. CETIRIZINE [Suspect]
     Indication: HYPERSENSITIVITY
     Dates: start: 20140131, end: 20140131
  2. DILANTIN [Concomitant]
     Indication: EPILEPSY
     Route: 065

REACTIONS (1)
  - Convulsion [Recovered/Resolved]
